FAERS Safety Report 4543661-9 (Version None)
Quarter: 2004Q4

REPORT INFORMATION
  Report Type: 
  Country: None (occurrence: None)
  Receive Date: 20041229
  Receipt Date: 20041229
  Transmission Date: 20050328
  Serious: Yes (Other)
  Sender: FDA-Public Use
  Company Number: None

PATIENT
  Sex: Male
  Weight: 62.5 kg

DRUGS (1)
  1. ARANESP [Suspect]

REACTIONS (1)
  - ASTHENIA [None]
